FAERS Safety Report 6265843-0 (Version None)
Quarter: 2009Q3

REPORT INFORMATION
  Report Type: 
  Country: None (occurrence: None)
  Receive Date: 20090713
  Receipt Date: 20090706
  Transmission Date: 20100115
  Serious: Yes (Other)
  Sender: FDA-Public Use
  Company Number: B0582730A

PATIENT

DRUGS (4)
  1. FLUTIDE DISKUS [Suspect]
     Indication: DRUG USE FOR UNKNOWN INDICATION
     Route: 055
  2. MEDICON [Concomitant]
     Route: 048
  3. SINGULAIR [Concomitant]
     Route: 048
  4. MUCOSOLVAN [Concomitant]
     Route: 048

REACTIONS (1)
  - BLOOD AMYLASE INCREASED [None]
